FAERS Safety Report 15740900 (Version 1)
Quarter: 2018Q4

REPORT INFORMATION
  Report Type: Spontaneous
  Country: US (occurrence: US)
  Receive Date: 20181213
  Receipt Date: 20181213
  Transmission Date: 20190205
  Serious: Yes (Hospitalization)
  Sender: FDA-Public Use
  Company Number: None

PATIENT
  Age: 68 Year

DRUGS (28)
  1. FEXOFENADINE-D [Concomitant]
  2. POTASSIUM CHLORIDE. [Concomitant]
     Active Substance: POTASSIUM CHLORIDE
  3. VITAMIN D [Concomitant]
     Active Substance: CHOLECALCIFEROL
  4. BUMETANIDE. [Concomitant]
     Active Substance: BUMETANIDE
  5. LYRICA [Concomitant]
     Active Substance: PREGABALIN
  6. PROBENECID. [Concomitant]
     Active Substance: PROBENECID
  7. VENTOLIN [Concomitant]
     Active Substance: ALBUTEROL SULFATE
  8. MYCOPHENOLATE [Suspect]
     Active Substance: MYCOPHENOLIC ACID
     Indication: LIVER TRANSPLANT
     Route: 048
     Dates: start: 20140308
  9. TACROLIMUS. [Suspect]
     Active Substance: TACROLIMUS
     Indication: LIVER TRANSPLANT
     Route: 048
     Dates: start: 20140308
  10. HYDROCODONE BITARTRATE AND ACETAMINOPHEN [Concomitant]
     Active Substance: ACETAMINOPHEN\HYDROCODONE BITARTRATE
  11. INDOMETHACIN. [Concomitant]
     Active Substance: INDOMETHACIN
  12. ANDROGEL [Concomitant]
     Active Substance: TESTOSTERONE
  13. BREO ELLIPTA [Concomitant]
     Active Substance: FLUTICASONE FUROATE\VILANTEROL TRIFENATATE
  14. ZOLPIDEM [Concomitant]
     Active Substance: ZOLPIDEM\ZOLPIDEM TARTRATE
  15. TRAMADOL. [Concomitant]
     Active Substance: TRAMADOL
  16. PREDNISONE. [Concomitant]
     Active Substance: PREDNISONE
  17. ZOLPIDEM [Concomitant]
     Active Substance: ZOLPIDEM\ZOLPIDEM TARTRATE
  18. ADVAIR HFA [Concomitant]
     Active Substance: FLUTICASONE PROPIONATE\SALMETEROL XINAFOATE
  19. COLCHICINE. [Concomitant]
     Active Substance: COLCHICINE
  20. MONTELUKAST [Concomitant]
     Active Substance: MONTELUKAST SODIUM
  21. GABAPENTIN. [Concomitant]
     Active Substance: GABAPENTIN
  22. OXYCODONE AND ACETAMINOPHEN [Concomitant]
     Active Substance: ACETAMINOPHEN\OXYCODONE HYDROCHLORIDE
  23. TIZANIDINE. [Concomitant]
     Active Substance: TIZANIDINE
  24. ULTRAM [Concomitant]
     Active Substance: TRAMADOL HYDROCHLORIDE
  25. LEVOTHYROXINE. [Concomitant]
     Active Substance: LEVOTHYROXINE
  26. FUROSEMIDE. [Concomitant]
     Active Substance: FUROSEMIDE
  27. ARIMIDEX [Concomitant]
     Active Substance: ANASTROZOLE
  28. TRAZODONE [Concomitant]
     Active Substance: TRAZODONE HYDROCHLORIDE

REACTIONS (1)
  - Dyspnoea [None]

NARRATIVE: CASE EVENT DATE: 20181126
